FAERS Safety Report 20097295 (Version 2)
Quarter: 2021Q4

REPORT INFORMATION
  Report Type: Spontaneous
  Country: AT (occurrence: AT)
  Receive Date: 20211122
  Receipt Date: 20211215
  Transmission Date: 20220303
  Serious: No
  Sender: FDA-Public Use
  Company Number: AT-PFIZER INC-202101516982

PATIENT
  Sex: Female

DRUGS (1)
  1. MEDROXYPROGESTERONE [Suspect]
     Active Substance: MEDROXYPROGESTERONE
     Dosage: 160 MG/ML 0.65 ML

REACTIONS (1)
  - Device leakage [Unknown]

NARRATIVE: CASE EVENT DATE: 20210101
